FAERS Safety Report 9767879 (Version 3)
Quarter: 2014Q1

REPORT INFORMATION
  Report Type: Spontaneous
  Country: US (occurrence: US)
  Receive Date: 20131217
  Receipt Date: 20140320
  Transmission Date: 20141002
  Serious: Yes (Other)
  Sender: FDA-Public Use
  Company Number: US-UCBSA-105656

PATIENT
  Age: 61 Year
  Sex: Female
  Weight: 68.18 kg

DRUGS (3)
  1. OMEPRAZOLE [Suspect]
     Indication: GASTROOESOPHAGEAL REFLUX DISEASE
     Dosage: STRENGTH: 20 MG
     Route: 048
     Dates: start: 20131116, end: 2013
  2. THYROXINE [Concomitant]
  3. SIMVASTATIN [Concomitant]

REACTIONS (6)
  - Erythema multiforme [Recovering/Resolving]
  - Mechanical urticaria [Unknown]
  - Urticaria [Unknown]
  - Local swelling [Unknown]
  - Oesophageal spasm [Unknown]
  - Chest pain [Unknown]
